FAERS Safety Report 5800656-2 (Version None)
Quarter: 2008Q3

REPORT INFORMATION
  Report Type: 
  Country: None (occurrence: None)
  Receive Date: 20080703
  Receipt Date: 20080624
  Transmission Date: 20090109
  Serious: Yes (Other)
  Sender: FDA-Public Use
  Company Number: DE-BAXTER-2008BH006472

PATIENT
  Age: 40 Year
  Sex: Female
  Weight: 124 kg

DRUGS (2)
  1. GAMMAGARD LIQUID [Suspect]
     Indication: ALLOGENIC BONE MARROW TRANSPLANTATION THERAPY
     Route: 042
     Dates: start: 20080527, end: 20080527
  2. GAMMAGARD LIQUID [Suspect]
     Route: 042
     Dates: start: 20080527, end: 20080527

REACTIONS (4)
  - ANAPHYLACTIC REACTION [None]
  - CHILLS [None]
  - DYSPNOEA [None]
  - PYREXIA [None]
